FAERS Safety Report 4273855-1 (Version None)
Quarter: 2004Q1

REPORT INFORMATION
  Report Type: 
  Country: None (occurrence: None)
  Receive Date: 20040115
  Receipt Date: 20040108
  Transmission Date: 20041129
  Serious: Yes (Hospitalization, Other)
  Sender: FDA-Public Use
  Company Number: USA-2003-0006353

PATIENT
  Age: 63 Year
  Sex: Female

DRUGS (2)
  1. MS CONTIN [Suspect]
     Indication: PAIN
     Dosage: 600 MG, BID , ORAL
     Route: 048
     Dates: start: 20020101
  2. MSIR CAPSULES (MORPHINE SULFATE)CAPSULE [Suspect]
     Indication: PAIN

REACTIONS (4)
  - ACCIDENTAL OVERDOSE [None]
  - MALIGNANT NEOPLASM PROGRESSION [None]
  - NON-SMALL CELL LUNG CANCER STAGE IV [None]
  - PAIN [None]
